FAERS Safety Report 6582006-X (Version None)
Quarter: 2010Q1

REPORT INFORMATION
  Report Type: 
  Country: None (occurrence: None)
  Receive Date: 20100215
  Receipt Date: 20100204
  Transmission Date: 20100710
  Serious: Yes (Hospitalization)
  Sender: FDA-Public Use
  Company Number: AU-MERCK-1002USA00699

PATIENT
  Age: 36 Year
  Sex: Female
  Weight: 69 kg

DRUGS (5)
  1. EMEND [Suspect]
     Route: 048
     Dates: start: 20090331, end: 20090401
  2. CYCLOPHOSPHAMIDE [Concomitant]
     Route: 065
  3. DEXAMETHASONE [Concomitant]
     Route: 065
  4. DOXORUBICIN HYDROCHLORIDE [Concomitant]
     Route: 065
  5. NAVOBAN [Concomitant]
     Route: 065

REACTIONS (4)
  - CARDIAC ARREST [None]
  - NAUSEA [None]
  - SINUS BRADYCARDIA [None]
  - SYNCOPE [None]
